FAERS Safety Report 19417451 (Version 1)
Quarter: 2021Q2

REPORT INFORMATION
  Report Type: Spontaneous
  Country: LK (occurrence: LK)
  Receive Date: 20210615
  Receipt Date: 20210615
  Transmission Date: 20210717
  Serious: Yes (Hospitalization)
  Sender: FDA-Public Use
  Company Number: LK-PERRIGO-21LK007206

PATIENT
  Age: 37 Year
  Sex: Male

DRUGS (1)
  1. ACETAMINOPHEN. [Suspect]
     Active Substance: ACETAMINOPHEN
     Indication: PRODUCT USED FOR UNKNOWN INDICATION
     Dosage: 667 MG/KG, QD
     Route: 048

REACTIONS (4)
  - Metabolic acidosis [Recovering/Resolving]
  - Liver injury [Recovering/Resolving]
  - Overdose [Recovering/Resolving]
  - Coma scale abnormal [Recovering/Resolving]
